FAERS Safety Report 8461548-6 (Version None)
Quarter: 2012Q2

REPORT INFORMATION
  Report Type: 
  Country: None (occurrence: None)
  Receive Date: 20120625
  Receipt Date: 20120612
  Transmission Date: 20120825
  Serious: Yes (Hospitalization)
  Sender: FDA-Public Use
  Company Number: PHHY2012DE053275

PATIENT
  Sex: Male

DRUGS (2)
  1. STALEVO 100 [Suspect]
     Indication: PARKINSON'S DISEASE
  2. CARBIDOPA + LEVODOPA [Suspect]

REACTIONS (11)
  - HALLUCINATION [None]
  - EOSINOPHIL COUNT DECREASED [None]
  - RED BLOOD CELL COUNT DECREASED [None]
  - BLOOD CREATININE DECREASED [None]
  - DELUSIONAL DISORDER, UNSPECIFIED TYPE [None]
  - DELIRIUM [None]
  - OVERDOSE [None]
  - BLOOD CALCIUM DECREASED [None]
  - HAEMOGLOBIN DECREASED [None]
  - C-REACTIVE PROTEIN INCREASED [None]
  - BLOOD GLUCOSE INCREASED [None]
